FAERS Safety Report 16662652 (Version 2)
Quarter: 2020Q1

REPORT INFORMATION
  Report Type: Report from Study
  Country: US (occurrence: US)
  Receive Date: 20190802
  Receipt Date: 20200129
  Transmission Date: 20200409
  Serious: No
  Sender: FDA-Public Use
  Company Number: US-EXELIXIS-CABO-19018985

PATIENT
  Age: 74 Year
  Sex: Female

DRUGS (2)
  1. CABOMETYX [Suspect]
     Active Substance: CABOZANTINIB S-MALATE
     Dosage: 20 MG, UNK
     Dates: start: 20190215
  2. CABOMETYX [Suspect]
     Active Substance: CABOZANTINIB S-MALATE
     Indication: BREAST CANCER FEMALE
     Dosage: 40 MG, UNK
     Dates: start: 201901, end: 20190208

REACTIONS (5)
  - Rash macular [Unknown]
  - Liver function test decreased [Unknown]
  - Fatigue [Unknown]
  - Off label use [Unknown]
  - Renal function test abnormal [Unknown]

NARRATIVE: CASE EVENT DATE: 20190208
